FAERS Safety Report 9286801 (Version 3)
Quarter: 2013Q3

REPORT INFORMATION
  Report Type: Report from Study
  Country: US (occurrence: US)
  Receive Date: 20130513
  Receipt Date: 20130923
  Transmission Date: 20140515
  Serious: Yes (Other)
  Sender: FDA-Public Use
  Company Number: US-ALEXION-A201300999

PATIENT
  Sex: 0

DRUGS (5)
  1. SOLIRIS [Suspect]
     Indication: PAROXYSMAL NOCTURNAL HAEMOGLOBINURIA
     Dosage: UNK
     Route: 042
  2. SOLIRIS [Suspect]
     Dosage: 900 MG, Q2W
     Route: 042
     Dates: start: 201106
  3. LOVENOX [Concomitant]
     Indication: ANTICOAGULANT THERAPY
     Dosage: 100 MG, QD
  4. COMPAZINE [Concomitant]
     Indication: PREMEDICATION
     Dosage: 10 MG, UNK
     Route: 048
  5. FLONASE [Concomitant]
     Dosage: UNK, PRN

REACTIONS (3)
  - Thrombosis in device [Not Recovered/Not Resolved]
  - Protein total increased [Unknown]
  - Oedema peripheral [Not Recovered/Not Resolved]
